FAERS Safety Report 18924358 (Version 2)
Quarter: 2021Q2

REPORT INFORMATION
  Report Type: Spontaneous
  Country: US (occurrence: US)
  Receive Date: 20210223
  Receipt Date: 20210408
  Transmission Date: 20210717
  Serious: No
  Sender: FDA-Public Use
  Company Number: US-ASTRAZENECA-2021A051725

PATIENT
  Sex: Female
  Weight: 98.9 kg

DRUGS (2)
  1. SYMBICORT [Suspect]
     Active Substance: BUDESONIDE\FORMOTEROL FUMARATE DIHYDRATE
     Indication: ASTHMA
     Dosage: 160/4.5MCG,120 INHALATIONS, 1 PUFF TWICE DAILY
     Route: 055
     Dates: start: 2019
  2. SYMBICORT [Suspect]
     Active Substance: BUDESONIDE\FORMOTEROL FUMARATE DIHYDRATE
     Indication: ASTHMA
     Dosage: SYMBICORT 160/4.5MCG , LAST 2 PUFFS FOR THE DAY ON SUNDAY
     Route: 055
     Dates: start: 20210202

REACTIONS (6)
  - Intentional dose omission [Unknown]
  - Product prescribing issue [Unknown]
  - Intentional device misuse [Unknown]
  - Wrong technique in device usage process [Unknown]
  - Asthma [Unknown]
  - Drug delivery system issue [Unknown]
